FAERS Safety Report 4509848-6 (Version None)
Quarter: 2004Q4

REPORT INFORMATION
  Report Type: 
  Country: None (occurrence: None)
  Receive Date: 20041119
  Receipt Date: 20041108
  Transmission Date: 20050328
  Serious: Yes (Hospitalization)
  Sender: FDA-Public Use
  Company Number: 2004091162

PATIENT
  Age: 16 Year
  Sex: Male

DRUGS (2)
  1. CETIRIZINE (TABLETS) (CETIRIZINE) [Suspect]
     Indication: CHRONIC TONSILLITIS
     Dosage: ORAL
     Route: 048
     Dates: start: 20041023, end: 20041030
  2. CLINDAMYCIN HCL [Concomitant]

REACTIONS (1)
  - DERMATITIS ALLERGIC [None]
